FAERS Safety Report 9230112 (Version 2)
Quarter: 2013Q4

REPORT INFORMATION
  Report Type: Spontaneous
  Country: US (occurrence: US)
  Receive Date: 20130415
  Receipt Date: 20131223
  Transmission Date: 20140711
  Serious: Yes (Other)
  Sender: FDA-Public Use
  Company Number: US-BAYER-2013-045379

PATIENT
  Age: 47 Year
  Sex: Female
  Weight: 86.17 kg

DRUGS (9)
  1. YAZ [Suspect]
     Dosage: UNK
     Dates: start: 201011, end: 201102
  2. YASMIN [Suspect]
     Dosage: UNK
     Dates: start: 2010, end: 2011
  3. VICODIN [Concomitant]
  4. CEPHALEXIN [Concomitant]
     Dosage: 500 MG, TID
     Dates: start: 20101213
  5. SYNTHROID [Concomitant]
     Indication: HYPOTHYROIDISM
     Dosage: 125 MCG DAILY
     Dates: start: 1997
  6. CYCLOBENZAPRINE [Concomitant]
     Indication: MUSCLE SPASMS
     Dosage: 5 MG, TID AS NEEDED
     Dates: start: 20110110
  7. HYDROCODONE W/ACETAMINOPHEN [Concomitant]
     Indication: PAIN
     Dosage: 5-500MG, 1-2 EVERY 4-6 HOURS AS NEEDED
     Dates: start: 20110110
  8. IBUPROFEN [Concomitant]
     Indication: INFLAMMATION
     Dosage: 200 MG, 2 TABS EVERY 4-6 HOURS AS NEEDED
     Dates: start: 20110110
  9. FLEXERIL [Concomitant]

REACTIONS (12)
  - Deep vein thrombosis [Recovering/Resolving]
  - Thrombophlebitis superficial [None]
  - Thrombosis [None]
  - Injury [Recovering/Resolving]
  - Pain [Recovering/Resolving]
  - Emotional distress [None]
  - General physical health deterioration [None]
  - Anxiety [None]
  - Abdominal pain [None]
  - Pain [None]
  - Loss of consciousness [None]
  - Menorrhagia [None]
